FAERS Safety Report 7537636-5 (Version None)
Quarter: 2011Q2

REPORT INFORMATION
  Report Type: 
  Country: None (occurrence: None)
  Receive Date: 20110609
  Receipt Date: 20070723
  Transmission Date: 20111010
  Serious: Yes (Death)
  Sender: FDA-Public Use
  Company Number: PHFR2007GB02026

PATIENT
  Sex: Male

DRUGS (2)
  1. CLOZAPINE [Suspect]
     Indication: SCHIZOPHRENIA
     Dosage: 250MG MANE + 350MG NOCTE
     Route: 048
     Dates: start: 19920107
  2. HYOSCINE [Concomitant]
     Indication: SALIVARY HYPERSECRETION
     Dosage: 300UG/DAY
     Route: 048
     Dates: start: 19980101

REACTIONS (4)
  - MYOCARDIAL INFARCTION [None]
  - SLEEP APNOEA SYNDROME [None]
  - OBESITY [None]
  - BLOOD GLUCOSE INCREASED [None]
